FAERS Safety Report 18891239 (Version 2)
Quarter: 2021Q1

REPORT INFORMATION
  Report Type: Report from Study
  Country: US (occurrence: US)
  Receive Date: 20210215
  Receipt Date: 20210308
  Transmission Date: 20210420
  Serious: Yes (Hospitalization, Other)
  Sender: FDA-Public Use
  Company Number: US-B.I. PHARMACEUTICALS,INC./RIDGEFIELD-2021-BI-081740

PATIENT
  Age: 70 Year
  Sex: Male

DRUGS (4)
  1. FLOMAX [Concomitant]
     Active Substance: TAMSULOSIN HYDROCHLORIDE
     Indication: PROSTATOMEGALY
     Dosage: 0.4MG ONCE DAILY
  2. LIPITOR [Concomitant]
     Active Substance: ATORVASTATIN CALCIUM
     Indication: BLOOD CHOLESTEROL INCREASED
     Dosage: 20MG ONCE DAILY
  3. OFEV [Suspect]
     Active Substance: NINTEDANIB
     Indication: IDIOPATHIC PULMONARY FIBROSIS
     Dosage: 150MG BID
     Route: 048
     Dates: start: 20150915
  4. ASPIRIN [ACETYLSALICYLIC ACID] [Concomitant]
     Active Substance: ASPIRIN
     Indication: MYOCARDIAL INFARCTION
     Dosage: 81 MG
     Dates: end: 2017

REACTIONS (6)
  - Aortic aneurysm [Recovered/Resolved]
  - Aortic aneurysm rupture [Recovered/Resolved]
  - Oxygen saturation decreased [Not Recovered/Not Resolved]
  - Aortic aneurysm [Recovered/Resolved]
  - Aortic aneurysm [Recovered/Resolved]
  - Bradypnoea [Not Recovered/Not Resolved]

NARRATIVE: CASE EVENT DATE: 2016
